FAERS Safety Report 10173334 (Version 3)
Quarter: 2019Q1

REPORT INFORMATION
  Report Type: Spontaneous
  Country: FR (occurrence: FR)
  Receive Date: 20140515
  Receipt Date: 20190131
  Transmission Date: 20190417
  Serious: Yes (Death, Hospitalization)
  Sender: FDA-Public Use
  Company Number: FR-BAXTER-2014BAX022515

PATIENT
  Age: 58 Year
  Sex: Female

DRUGS (6)
  1. ENDOXAN 1000 MG, LYOPHILISAT POUR SOLUTION INJECTABLE [Suspect]
     Active Substance: CYCLOPHOSPHAMIDE
     Indication: MULTIPLE SCLEROSIS
     Dosage: 6 CYCLES, 1 G PER MONTH
     Route: 041
     Dates: start: 201102, end: 201108
  2. TYSABRI [Suspect]
     Active Substance: NATALIZUMAB
     Indication: MULTIPLE SCLEROSIS
     Dosage: 14 CYCLES, ONCE A MONTH
     Route: 041
     Dates: start: 200909, end: 201009
  3. CELLCEPT [Suspect]
     Active Substance: MYCOPHENOLATE MOFETIL\MYCOPHENOLATE MOFETIL HYDROCHLORIDE
     Route: 048
     Dates: start: 201303
  4. AVONEX [Suspect]
     Active Substance: INTERFERON BETA-1A
     Indication: MULTIPLE SCLEROSIS
     Route: 030
     Dates: start: 200304, end: 200612
  5. COPAXONE [Suspect]
     Active Substance: GLATIRAMER ACETATE
     Indication: MULTIPLE SCLEROSIS
     Route: 058
     Dates: start: 200701, end: 200907
  6. CELLCEPT [Suspect]
     Active Substance: MYCOPHENOLATE MOFETIL\MYCOPHENOLATE MOFETIL HYDROCHLORIDE
     Indication: MULTIPLE SCLEROSIS
     Route: 048
     Dates: start: 201111, end: 201303

REACTIONS (2)
  - Synovial sarcoma [Not Recovered/Not Resolved]
  - Cardiogenic shock [Fatal]

NARRATIVE: CASE EVENT DATE: 201312
